FAERS Safety Report 25907168 (Version 1)
Quarter: 2025Q4

REPORT INFORMATION
  Report Type: Report from Study
  Country: AE (occurrence: AE)
  Receive Date: 20251010
  Receipt Date: 20251010
  Transmission Date: 20260117
  Serious: Yes (Hospitalization)
  Sender: AMGEN
  Company Number: AE-AMGEN-ARESL2025197841

PATIENT
  Sex: Female

DRUGS (1)
  1. NPLATE [Suspect]
     Active Substance: ROMIPLOSTIM
     Indication: Immune thrombocytopenia
     Dosage: 250 MICROGRAM, QWK
     Route: 065

REACTIONS (2)
  - Pyrexia [Unknown]
  - Abdominal pain upper [Unknown]
